FAERS Safety Report 8085722-6 (Version None)
Quarter: 2012Q1

REPORT INFORMATION
  Report Type: 
  Country: None (occurrence: None)
  Receive Date: 20120128
  Receipt Date: 20110401
  Transmission Date: 20120608
  Serious: No
  Sender: FDA-Public Use
  Company Number: US-ABBOTT-11P-163-0716642-00

PATIENT
  Sex: Male
  Weight: 63.56 kg

DRUGS (4)
  1. HUMIRA [Suspect]
     Dosage: TOOK ON DAY 15- 2 IN 1 DAYS
     Route: 058
     Dates: start: 20101201, end: 20101201
  2. HUMIRA [Suspect]
     Indication: CROHN'S DISEASE
     Dosage: LOADING DOSE ON DAY ONE- 4 IN 1 DAYS
     Route: 058
     Dates: start: 20101201, end: 20101201
  3. HUMIRA [Suspect]
     Dosage: MAINTENANCE DOSE- 1 IN 2 WEEKS
     Route: 058
     Dates: start: 20101201
  4. ANDROGEL [Concomitant]
     Indication: PRODUCT USED FOR UNKNOWN INDICATION

REACTIONS (1)
  - CHILLS [None]
